FAERS Safety Report 5617368-0 (Version None)
Quarter: 2008Q1

REPORT INFORMATION
  Report Type: 
  Country: None (occurrence: None)
  Receive Date: 20080207
  Receipt Date: 20070711
  Transmission Date: 20080703
  Serious: No
  Sender: FDA-Public Use
  Company Number: A0663355A

PATIENT
  Age: 62 Year
  Sex: Female

DRUGS (3)
  1. PAROXETINE [Suspect]
     Indication: DRUG USE FOR UNKNOWN INDICATION
     Dosage: 20MG PER DAY
     Route: 048
     Dates: start: 20040101
  2. PAROXETINE [Suspect]
     Dosage: 40MG VARIABLE DOSE
     Route: 048
     Dates: start: 20060801
  3. ALTACE [Concomitant]

REACTIONS (4)
  - ANGER [None]
  - DRUG INEFFECTIVE [None]
  - STRESS [None]
  - TENSION [None]
